FAERS Safety Report 8382128-7 (Version None)
Quarter: 2012Q2

REPORT INFORMATION
  Report Type: 
  Country: None (occurrence: None)
  Receive Date: 20120524
  Receipt Date: 20120521
  Transmission Date: 20120825
  Serious: Yes (Hospitalization, Other)
  Sender: FDA-Public Use
  Company Number: US-PFIZER INC-2012122822

PATIENT
  Sex: Female
  Weight: 69.841 kg

DRUGS (3)
  1. ZANAFLEX [Concomitant]
     Dosage: UNK
  2. LYRICA [Suspect]
     Indication: MYALGIA
     Dosage: 225 MG, 2X/DAY
     Route: 048
     Dates: end: 20120501
  3. SYNTHROID [Concomitant]
     Dosage: UNK

REACTIONS (4)
  - CELLULITIS [None]
  - BLOOD POTASSIUM DECREASED [None]
  - SUICIDAL IDEATION [None]
  - COMPLEX REGIONAL PAIN SYNDROME [None]
